FAERS Safety Report 15328416 (Version 1)
Quarter: 2018Q3

REPORT INFORMATION
  Report Type: Spontaneous
  Country: CN (occurrence: CN)
  Receive Date: 20180829
  Receipt Date: 20180829
  Transmission Date: 20181010
  Serious: Yes (Death, Other)
  Sender: FDA-Public Use
  Company Number: CN-BRISTOL-MYERS SQUIBB COMPANY-BMS-2018-080229

PATIENT
  Age: 64 Year
  Sex: Male

DRUGS (4)
  1. OPDIVO [Suspect]
     Active Substance: NIVOLUMAB
     Indication: LUNG NEOPLASM MALIGNANT
     Dosage: 140 MG, UNK
     Route: 065
     Dates: start: 20170722
  2. ENDOSTAR [Suspect]
     Active Substance: ENDOSTATIN
     Indication: LUNG NEOPLASM MALIGNANT
     Dosage: 30 MG, UNK
     Route: 065
     Dates: start: 201606
  3. CISPLATIN. [Suspect]
     Active Substance: CISPLATIN
     Indication: LUNG NEOPLASM MALIGNANT
     Dosage: 110 MG, UNK
     Route: 065
     Dates: start: 201606
  4. GEMCITABINE [Suspect]
     Active Substance: GEMCITABINE\GEMCITABINE HYDROCHLORIDE
     Indication: LUNG NEOPLASM MALIGNANT
     Dosage: 18 G, D1
     Route: 065
     Dates: start: 201606

REACTIONS (1)
  - Pancreatitis acute [Fatal]
